FAERS Safety Report 9592788 (Version 1)
Quarter: 2013Q4

REPORT INFORMATION
  Report Type: Spontaneous
  Country: US (occurrence: None)
  Receive Date: 20131003
  Receipt Date: 20131003
  Transmission Date: 20140711
  Serious: Yes (Hospitalization)
  Sender: FDA-Public Use
  Company Number: None

PATIENT
  Age: 59 Year
  Sex: Female
  Weight: 78.2 kg

DRUGS (1)
  1. XELODA [Suspect]
     Indication: BREAST CANCER
     Dosage: BID X 14 DAYS, THEN
     Route: 048
     Dates: start: 20130205

REACTIONS (1)
  - Pulmonary thrombosis [None]
